FAERS Safety Report 4956664-7 (Version None)
Quarter: 2006Q1

REPORT INFORMATION
  Report Type: 
  Country: None (occurrence: None)
  Receive Date: 20060127
  Receipt Date: 20050707
  Transmission Date: 20060701
  Serious: Yes (Death)
  Sender: FDA-Public Use
  Company Number: 05-07-1216

PATIENT
  Age: 58 Year
  Sex: Female
  Weight: 87.9978 kg

DRUGS (3)
  1. CLOZAPINE [Suspect]
     Indication: SCHIZOPHRENIA
     Dosage: 125MG QHS, ORAL
     Route: 048
     Dates: start: 20050622, end: 20050601
  2. RISPERDAL [Concomitant]
  3. EFFEXOR [Concomitant]

REACTIONS (1)
  - UNEVALUABLE EVENT [None]
